FAERS Safety Report 6818536-2 (Version None)
Quarter: 2010Q3

REPORT INFORMATION
  Report Type: 
  Country: None (occurrence: None)
  Receive Date: 20100706
  Receipt Date: 20100701
  Transmission Date: 20110219
  Serious: Yes (Hospitalization)
  Sender: FDA-Public Use
  Company Number: US-GILEAD-2010-0030171

PATIENT
  Sex: Female

DRUGS (9)
  1. LETAIRIS [Suspect]
     Indication: PULMONARY ARTERIAL HYPERTENSION
     Route: 048
     Dates: start: 20100609, end: 20100620
  2. LASIX [Concomitant]
  3. IMDUR [Concomitant]
  4. ARICEPT [Concomitant]
  5. SYNTHROID [Concomitant]
  6. HUMULIN R [Concomitant]
  7. COUMADIN [Concomitant]
  8. CLONIDINE [Concomitant]
  9. COREG [Concomitant]

REACTIONS (2)
  - COUGH [None]
  - DYSPNOEA [None]
